FAERS Safety Report 11817518 (Version 2)
Quarter: 2016Q4

REPORT INFORMATION
  Report Type: Spontaneous
  Country: US (occurrence: US)
  Receive Date: 20151210
  Receipt Date: 20161025
  Transmission Date: 20170206
  Serious: No
  Sender: FDA-Public Use
  Company Number: US-JNJFOC-20151117957

PATIENT
  Sex: Male

DRUGS (2)
  1. RISPERDAL [Suspect]
     Active Substance: RISPERIDONE
     Indication: AUTISM
     Dosage: IN VARYING DOSES OF 0.25, 0.50, 0.75, 1 AND 1.50 MG
     Route: 048
     Dates: start: 2014, end: 2015
  2. RISPERDAL [Suspect]
     Active Substance: RISPERIDONE
     Indication: AFFECTIVE DISORDER
     Dosage: IN VARYING DOSES OF 0.25, 0.50, 0.75, 1 AND 1.50 MG
     Route: 048
     Dates: start: 2014, end: 2015

REACTIONS (5)
  - Gynaecomastia [Unknown]
  - Akathisia [Unknown]
  - Off label use [Unknown]
  - Abnormal weight gain [Unknown]
  - Product use issue [Unknown]

NARRATIVE: CASE EVENT DATE: 2014
